FAERS Safety Report 15700089 (Version 1)
Quarter: 2018Q4

REPORT INFORMATION
  Report Type: Spontaneous
  Country: IT (occurrence: IT)
  Receive Date: 20181207
  Receipt Date: 20181207
  Transmission Date: 20190205
  Serious: Yes (Hospitalization)
  Sender: FDA-Public Use
  Company Number: IT-TEVA-2018-IT-983544

PATIENT
  Age: 64 Year
  Sex: Male

DRUGS (4)
  1. FOLINA [Concomitant]
     Active Substance: FOLIC ACID
     Route: 048
  2. METHOTREXATE (METHOTREXATE SODIUM) [Suspect]
     Active Substance: METHOTREXATE SODIUM
     Indication: RHEUMATOID ARTHRITIS
     Route: 030
     Dates: start: 20050101, end: 20070914
  3. MEDROL [Suspect]
     Active Substance: METHYLPREDNISOLONE
     Indication: RHEUMATOID ARTHRITIS
     Dosage: 4 MILLIGRAM DAILY;
     Dates: start: 20050101, end: 20070914
  4. ENBREL [Suspect]
     Active Substance: ETANERCEPT
     Indication: RHEUMATOID ARTHRITIS
     Route: 058
     Dates: start: 20050101, end: 20070914

REACTIONS (1)
  - Pneumonia legionella [Recovered/Resolved with Sequelae]

NARRATIVE: CASE EVENT DATE: 20070914
